FAERS Safety Report 9719920 (Version 2)
Quarter: 2014Q1

REPORT INFORMATION
  Report Type: Spontaneous
  Country: US (occurrence: US)
  Receive Date: 20131128
  Receipt Date: 20140206
  Transmission Date: 20141002
  Serious: No
  Sender: FDA-Public Use
  Company Number: US-JNJFOC-20131113813

PATIENT
  Age: 66 Year
  Sex: Male
  Weight: 157.85 kg

DRUGS (16)
  1. XARELTO [Suspect]
     Indication: EMBOLISM VENOUS
     Route: 048
     Dates: start: 20130218, end: 20130613
  2. AVAPRO [Suspect]
     Indication: HYPERTENSION
     Route: 048
  3. VERAPAMIL [Suspect]
     Indication: HYPERTENSION
     Route: 065
  4. ASA [Suspect]
     Indication: PRODUCT USED FOR UNKNOWN INDICATION
     Route: 065
  5. VERAPAMIL HCL [Suspect]
     Indication: PRODUCT USED FOR UNKNOWN INDICATION
     Route: 048
  6. TRAMADOL [Concomitant]
     Indication: PAIN
     Dosage: 1500/300
     Route: 065
  7. OMEPRAZOLE [Concomitant]
     Indication: GASTROOESOPHAGEAL REFLUX DISEASE
     Route: 048
     Dates: start: 2006
  8. GLUCOSAMINE / CHONDROITIN [Concomitant]
     Indication: ARTHRITIS
     Dosage: 1500/300
     Route: 065
  9. LUTEIN [Concomitant]
     Route: 048
  10. METAMUCIL [Concomitant]
     Route: 065
  11. BEANO [Concomitant]
     Route: 048
  12. PROVENTIL [Concomitant]
     Route: 065
  13. ALUMINIUM CHLORIDE [Concomitant]
     Indication: HYPERHIDROSIS
     Dosage: APPLIED TO AFFECTED AREA AS NEEDED TO CONTROL SWEATING
     Route: 061
  14. FLOVENT HFA [Concomitant]
     Dosage: 1 PUFF
     Route: 055
  15. FLUTICASONE PROPIONATE [Concomitant]
     Dosage: 2 SPRAYS IN EACH NOSTRIL
     Route: 045
  16. ANDROGEL [Concomitant]
     Dosage: 50MG/5GM
     Route: 062

REACTIONS (3)
  - Haemorrhagic diathesis [Recovered/Resolved]
  - Contusion [Recovered/Resolved]
  - Joint swelling [Recovered/Resolved]
